FAERS Safety Report 8001003-0 (Version None)
Quarter: 2011Q4

REPORT INFORMATION
  Report Type: 
  Country: None (occurrence: None)
  Receive Date: 20111222
  Receipt Date: 20110315
  Transmission Date: 20120403
  Serious: No
  Sender: FDA-Public Use
  Company Number: US-GLAXOSMITHKLINE-A0918295A

PATIENT
  Age: 66 Year
  Sex: Female

DRUGS (3)
  1. FLUTICASONE PROPIONATE [Suspect]
     Indication: MULTIPLE ALLERGIES
     Route: 045
     Dates: start: 20100501, end: 20110123
  2. ATENOLOL [Concomitant]
  3. ZOLOFT [Concomitant]

REACTIONS (3)
  - PHOTOPSIA [None]
  - VITREOUS FLOATERS [None]
  - BALANCE DISORDER [None]
